FAERS Safety Report 20684869 (Version 1)
Quarter: 2022Q2

REPORT INFORMATION
  Report Type: Spontaneous
  Country: US (occurrence: None)
  Receive Date: 20220405
  Receipt Date: 20220405
  Transmission Date: 20220721
  Serious: Yes (Hospitalization)
  Sender: FDA-Public Use
  Company Number: None

PATIENT
  Age: 65 Year
  Sex: Male

DRUGS (16)
  1. AMBRISENTAN [Suspect]
     Active Substance: AMBRISENTAN
     Indication: Pulmonary arterial hypertension
     Dosage: FREQUENCY : DAILY;?
     Route: 048
     Dates: start: 20210824
  2. SILDENAFIL [Suspect]
     Active Substance: SILDENAFIL
     Indication: Product used for unknown indication
  3. FAMOTIDINE [Concomitant]
     Active Substance: FAMOTIDINE
  4. NORCO [Concomitant]
     Active Substance: ACETAMINOPHEN\HYDROCODONE BITARTRATE
  5. ATORVASTATIN [Concomitant]
     Active Substance: ATORVASTATIN
  6. MIDODRINE [Concomitant]
     Active Substance: MIDODRINE
  7. renvels [Concomitant]
  8. DROXIDOPA [Concomitant]
     Active Substance: DROXIDOPA
  9. WARFARIN [Concomitant]
     Active Substance: WARFARIN
  10. DOCUSATE SODIUM [Concomitant]
  11. THIAMINE [Concomitant]
     Active Substance: THIAMINE
  12. HUMULIN R [Concomitant]
  13. LANTUS [Concomitant]
     Active Substance: INSULIN GLARGINE
  14. GABAPENTIN [Concomitant]
     Active Substance: GABAPENTIN
  15. vitamin   B12 [Concomitant]
  16. nephro-vite [Concomitant]

REACTIONS (3)
  - Dialysis [None]
  - Seizure [None]
  - Subarachnoid haemorrhage [None]

NARRATIVE: CASE EVENT DATE: 20220221
